FAERS Safety Report 16062648 (Version 1)
Quarter: 2019Q1

REPORT INFORMATION
  Report Type: Spontaneous
  Country: FR (occurrence: FR)
  Receive Date: 20190312
  Receipt Date: 20190312
  Transmission Date: 20190418
  Serious: Yes (Life-Threatening, Hospitalization, Other)
  Sender: FDA-Public Use
  Company Number: FR-TEVA-2019-FR-1009402

PATIENT
  Age: 44 Year
  Sex: Male

DRUGS (1)
  1. OXALIPLATINE TEVA [Suspect]
     Active Substance: OXALIPLATIN
     Indication: COLON CANCER
     Dosage: DILUTION; 7TH CYCLE
     Route: 041
     Dates: start: 20190110, end: 20190110

REACTIONS (7)
  - Hypersensitivity [Unknown]
  - Rash erythematous [Recovered/Resolved]
  - Vasoplegia syndrome [Recovered/Resolved]
  - Diarrhoea [Recovered/Resolved]
  - Blood pressure decreased [Recovered/Resolved]
  - Shock [Unknown]
  - Hyperthermia [Recovered/Resolved]

NARRATIVE: CASE EVENT DATE: 20190110
